FAERS Safety Report 9023854 (Version 1)
Quarter: 2013Q1

REPORT INFORMATION
  Report Type: Spontaneous
  Country: US (occurrence: US)
  Receive Date: 20130122
  Receipt Date: 20130122
  Transmission Date: 20140127
  Serious: No
  Sender: FDA-Public Use
  Company Number: US-009507513-1301USA004939

PATIENT
  Sex: Male

DRUGS (9)
  1. VICTRELIS [Suspect]
     Dosage: 4 DF, TID
     Route: 048
  2. RIBAVIRIN [Suspect]
  3. PEGASYS [Suspect]
  4. TAURINE [Concomitant]
  5. ARGININE [Concomitant]
  6. MAGNESIUM (UNSPECIFIED) [Concomitant]
  7. MILK THISTLE [Concomitant]
  8. GLUCOSAMINE [Concomitant]
  9. PYCNOGENOL [Concomitant]

REACTIONS (6)
  - Red blood cell count decreased [Unknown]
  - White blood cell count decreased [Unknown]
  - Fatigue [Unknown]
  - Disorientation [Unknown]
  - Dizziness [Unknown]
  - Nausea [Unknown]
